FAERS Safety Report 18464278 (Version 3)
Quarter: 2020Q4

REPORT INFORMATION
  Report Type: Spontaneous
  Country: JP (occurrence: JP)
  Receive Date: 20201104
  Receipt Date: 20201231
  Transmission Date: 20210114
  Serious: Yes (Death, Other)
  Sender: FDA-Public Use
  Company Number: JP-JAZZ-2020-JP-012135

PATIENT
  Age: 57 Year
  Sex: Male
  Weight: 48 kg

DRUGS (3)
  1. DEFITELIO [Suspect]
     Active Substance: DEFIBROTIDE SODIUM
     Indication: VENOOCCLUSIVE LIVER DISEASE
     Dosage: 6.25 MILLIGRAM/KILOGRAM, QID (DAILY)
     Route: 042
     Dates: start: 20200903, end: 20200925
  2. URSO [Concomitant]
     Active Substance: URSODIOL
     Indication: PROPHYLAXIS
  3. PREDONINE [Concomitant]
     Active Substance: PREDNISOLONE

REACTIONS (3)
  - Idiopathic pneumonia syndrome [Fatal]
  - Renal failure [Unknown]
  - Pre-existing condition improved [Unknown]

NARRATIVE: CASE EVENT DATE: 202009
